FAERS Safety Report 24767399 (Version 1)
Quarter: 2024Q4

REPORT INFORMATION
  Report Type: Spontaneous
  Country: ES (occurrence: ES)
  Receive Date: 20241223
  Receipt Date: 20241223
  Transmission Date: 20250115
  Serious: Yes (Hospitalization)
  Sender: MYLAN
  Company Number: None

PATIENT
  Age: 80 Year
  Sex: Female
  Weight: 79.4 kg

DRUGS (3)
  1. DOXAZOSIN [Interacting]
     Active Substance: DOXAZOSIN\DOXAZOSIN MESYLATE
     Indication: Hypertension
     Dosage: 8 MILLIGRAM, QD (8 MG EVERY 24 HOURS) (MODIFIED RELEASE TABLET)
     Route: 048
     Dates: start: 202203, end: 20240831
  2. CARVEDILOL [Interacting]
     Active Substance: CARVEDILOL
     Indication: Hypertension
     Dosage: 12.5 MILLIGRAM, BID (12.5 MG EVERY 12 HOURS)
     Route: 048
     Dates: start: 20220214, end: 20240831
  3. HYDROCHLOROTHIAZIDE\VALSARTAN [Interacting]
     Active Substance: HYDROCHLOROTHIAZIDE\VALSARTAN
     Indication: Hypertension
     Dosage: 1 DOSAGE FORM, QD (1 TABLET EVERY 24 HOURS) (28 TABLETS)
     Route: 048
     Dates: start: 202203, end: 20240831

REACTIONS (3)
  - Renal failure [Recovering/Resolving]
  - Condition aggravated [Recovered/Resolved]
  - Drug interaction [Unknown]

NARRATIVE: CASE EVENT DATE: 20240831
